FAERS Safety Report 13901226 (Version 1)
Quarter: 2017Q3

REPORT INFORMATION
  Report Type: Report from Study
  Country: US (occurrence: US)
  Receive Date: 20170824
  Receipt Date: 20170824
  Transmission Date: 20171127
  Serious: Yes (Other)
  Sender: FDA-Public Use
  Company Number: US-SUN PHARMACEUTICAL INDUSTRIES LTD-2017US-148097

PATIENT

DRUGS (2)
  1. QUETIAPINE. [Suspect]
     Active Substance: QUETIAPINE
     Dosage: 4.5 MG/KG, DAILY
     Route: 065
  2. QUETIAPINE. [Suspect]
     Active Substance: QUETIAPINE
     Indication: DELIRIUM
     Dosage: 6.3 MG/KG, DAILY
     Route: 065

REACTIONS (2)
  - Off label use [Unknown]
  - Electrocardiogram QT prolonged [Recovered/Resolved]
